FAERS Safety Report 10710031 (Version 2)
Quarter: 2015Q1

REPORT INFORMATION
  Report Type: Spontaneous
  Country: US (occurrence: US)
  Receive Date: 20150114
  Receipt Date: 20150116
  Transmission Date: 20150721
  Serious: Yes (Other)
  Sender: FDA-Public Use
  Company Number: US-PFIZER INC-2015013484

PATIENT
  Sex: Male

DRUGS (1)
  1. NICOTROL [Suspect]
     Active Substance: NICOTINE
     Dosage: UNK

REACTIONS (6)
  - Scratch [Unknown]
  - Skin atrophy [Unknown]
  - Diabetic neuropathy [Unknown]
  - Bone disorder [Unknown]
  - Burning sensation [Unknown]
  - Pain in extremity [Unknown]
